FAERS Safety Report 6020698-4 (Version None)
Quarter: 2008Q4

REPORT INFORMATION
  Report Type: 
  Country: None (occurrence: None)
  Receive Date: 20081222
  Receipt Date: 20081212
  Transmission Date: 20090506
  Serious: Yes (Other)
  Sender: FDA-Public Use
  Company Number: OSCN-NO-0812S-0661

PATIENT
  Age: 54 Year
  Sex: Male

DRUGS (1)
  1. OMNISCAN [Suspect]
     Indication: DRUG USE FOR UNKNOWN INDICATION
     Dosage: 20 ML, SINGLE DOSE
     Dates: start: 20081201, end: 20081201

REACTIONS (4)
  - DISCOMFORT [None]
  - HYPOGLYCAEMIA [None]
  - MALAISE [None]
  - PALLOR [None]
